FAERS Safety Report 4369255-6 (Version None)
Quarter: 2004Q2

REPORT INFORMATION
  Report Type: 
  Country: None (occurrence: None)
  Receive Date: 20040603
  Receipt Date: 20040217
  Transmission Date: 20050107
  Serious: No
  Sender: FDA-Public Use
  Company Number: US-GLAXOSMITHKLINE-A0498511A

PATIENT
  Sex: Male

DRUGS (3)
  1. AUGMENTIN XR [Suspect]
     Indication: SINUSITIS
     Dosage: 2TAB TWICE PER DAY
     Route: 048
     Dates: start: 20040124
  2. PAIN MEDICATION [Concomitant]
     Route: 065
  3. MUSCLE RELAXER [Concomitant]

REACTIONS (1)
  - DRUG SCREEN FALSE POSITIVE [None]
